FAERS Safety Report 10396885 (Version 5)
Quarter: 2014Q4

REPORT INFORMATION
  Report Type: Spontaneous
  Country: IE (occurrence: IE)
  Receive Date: 20140820
  Receipt Date: 20141204
  Transmission Date: 20150528
  Serious: Yes (Death, Hospitalization, Other)
  Sender: FDA-Public Use
  Company Number: IE-ASTRAZENECA-2014SE61557

PATIENT
  Age: 84 Year
  Sex: Male

DRUGS (9)
  1. ELIQUIS [Suspect]
     Active Substance: APIXABAN
     Indication: CEREBROVASCULAR ACCIDENT PROPHYLAXIS
     Route: 048
     Dates: end: 20140501
  2. ELIQUIS [Suspect]
     Active Substance: APIXABAN
     Indication: ATRIAL FIBRILLATION
     Route: 048
     Dates: end: 20140501
  3. CITALOPRAM [Suspect]
     Active Substance: CITALOPRAM HYDROBROMIDE
     Indication: DEPRESSION
     Route: 048
     Dates: end: 20140501
  4. BUTRANS [Concomitant]
     Active Substance: BUPRENORPHINE
     Route: 062
     Dates: start: 201310, end: 201402
  5. KEPPRA [Suspect]
     Active Substance: LEVETIRACETAM
     Route: 048
     Dates: end: 20140501
  6. LACTULOSE. [Concomitant]
     Active Substance: LACTULOSE
  7. ESOMEPRAZOLE MAGNESIUM. [Suspect]
     Active Substance: ESOMEPRAZOLE MAGNESIUM
     Route: 048
     Dates: end: 20140501
  8. ATORVASTATIN CALCIUM. [Suspect]
     Active Substance: ATORVASTATIN CALCIUM
     Indication: HYPERCHOLESTEROLAEMIA
     Route: 048
     Dates: end: 20140501
  9. FUROSEMIDE. [Concomitant]
     Active Substance: FUROSEMIDE
     Dates: start: 20140501

REACTIONS (2)
  - Acute hepatic failure [Fatal]
  - Renal impairment [Fatal]

NARRATIVE: CASE EVENT DATE: 20140501
